FAERS Safety Report 8473652-7 (Version None)
Quarter: 2012Q2

REPORT INFORMATION
  Report Type: 
  Country: None (occurrence: None)
  Receive Date: 20120628
  Receipt Date: 20110824
  Transmission Date: 20120825
  Serious: Yes (Hospitalization, Other)
  Sender: FDA-Public Use
  Company Number: US-MYLANLABS-2011S1016153

PATIENT
  Age: 50 Year
  Sex: Male

DRUGS (5)
  1. CLOZAPINE [Suspect]
     Indication: SCHIZOPHRENIA
     Route: 048
     Dates: end: 20110729
  2. KALETRA [Suspect]
     Indication: PROPHYLAXIS AGAINST HIV INFECTION
     Dates: start: 20110607, end: 20110701
  3. COGENTIN [Concomitant]
  4. COMBIVIR [Suspect]
     Indication: PROPHYLAXIS AGAINST HIV INFECTION
     Dates: start: 20110607, end: 20110701
  5. HALDOL [Concomitant]

REACTIONS (2)
  - LEUKOPENIA [None]
  - GRANULOCYTOPENIA [None]
